FAERS Safety Report 13862607 (Version 1)
Quarter: 2017Q3

REPORT INFORMATION
  Report Type: Report from Study
  Country: CA (occurrence: CA)
  Receive Date: 20170814
  Receipt Date: 20170814
  Transmission Date: 20171127
  Serious: Yes (Other)
  Sender: FDA-Public Use
  Company Number: CA-ROCHE-1343581

PATIENT
  Age: 58 Year
  Sex: Female
  Weight: 97.61 kg

DRUGS (28)
  1. ACTONEL [Concomitant]
     Active Substance: RISEDRONATE SODIUM
     Route: 065
  2. ZOPICLONE [Concomitant]
     Active Substance: ZOPICLONE
     Route: 065
  3. AMLODIPINE [Concomitant]
     Active Substance: AMLODIPINE BESYLATE
     Dosage: SIV-AMLODIPINE
     Route: 065
  4. METHYLPREDNISOLONE. [Concomitant]
     Active Substance: METHYLPREDNISOLONE
     Indication: PREMEDICATION
     Route: 042
     Dates: start: 20141020
  5. GARLIC. [Concomitant]
     Active Substance: GARLIC
  6. VITAMIN E [Concomitant]
     Active Substance: .ALPHA.-TOCOPHEROL
  7. PREDNISONE. [Concomitant]
     Active Substance: PREDNISONE
     Route: 065
  8. ALVESCO [Concomitant]
     Active Substance: CICLESONIDE
     Dosage: 200 MCG PER DOSE
     Route: 065
  9. GINKGO BILOBA [Concomitant]
     Active Substance: GINKGO
  10. ACTEMRA [Suspect]
     Active Substance: TOCILIZUMAB
     Indication: RHEUMATOID ARTHRITIS
     Route: 042
     Dates: start: 20131028
  11. ACTEMRA [Suspect]
     Active Substance: TOCILIZUMAB
     Route: 042
     Dates: start: 20140219
  12. VITAMIN C [Concomitant]
     Active Substance: ASCORBIC ACID
  13. DIPHENHYDRAMINE HCL [Concomitant]
     Active Substance: DIPHENHYDRAMINE HYDROCHLORIDE
     Indication: PREMEDICATION
     Route: 048
     Dates: start: 20141020
  14. APO-MOMETASONE [Concomitant]
     Active Substance: MOMETASONE FUROATE
     Route: 065
  15. RITUXAN [Suspect]
     Active Substance: RITUXIMAB
     Indication: RHEUMATOID ARTHRITIS
     Route: 042
     Dates: start: 20141020
  16. HYDROMORPHONE HCL [Concomitant]
     Active Substance: HYDROMORPHONE HYDROCHLORIDE
     Route: 065
  17. ALEVE [Concomitant]
     Active Substance: NAPROXEN SODIUM
  18. ACETAMINOPHEN. [Concomitant]
     Active Substance: ACETAMINOPHEN
     Indication: PREMEDICATION
     Route: 048
     Dates: start: 20141020
  19. FOLIC ACID. [Concomitant]
     Active Substance: FOLIC ACID
     Route: 065
  20. VENTOLIN HFA [Concomitant]
     Active Substance: ALBUTEROL SULFATE
     Route: 065
  21. ACTEMRA [Suspect]
     Active Substance: TOCILIZUMAB
     Route: 042
     Dates: start: 20140319, end: 20140811
  22. COVERSYL [Concomitant]
     Active Substance: PERINDOPRIL
     Route: 065
  23. COVERSYL [Concomitant]
     Active Substance: PERINDOPRIL
     Route: 065
  24. CRANBERRY. [Concomitant]
     Active Substance: CRANBERRY
     Dosage: VITAMIN
     Route: 065
  25. NOVOFERROGLUC [Concomitant]
     Route: 065
  26. VITAMIN B12 [Concomitant]
     Active Substance: CYANOCOBALAMIN
  27. METHOTREXATE. [Concomitant]
     Active Substance: METHOTREXATE
     Route: 065
  28. FLAXSEED [Concomitant]
     Active Substance: FLAX SEED

REACTIONS (13)
  - Blood cholesterol increased [Unknown]
  - Pain [Not Recovered/Not Resolved]
  - Musculoskeletal stiffness [Not Recovered/Not Resolved]
  - Drug ineffective [Unknown]
  - Oxygen saturation decreased [Unknown]
  - Hypertension [Unknown]
  - Arthropathy [Not Recovered/Not Resolved]
  - Arthralgia [Not Recovered/Not Resolved]
  - Weight increased [Unknown]
  - Food allergy [Unknown]
  - Hepatic enzyme increased [Not Recovered/Not Resolved]
  - Therapy non-responder [Unknown]
  - Joint swelling [Not Recovered/Not Resolved]

NARRATIVE: CASE EVENT DATE: 2014
